FAERS Safety Report 12641552 (Version 5)
Quarter: 2016Q4

REPORT INFORMATION
  Report Type: Spontaneous
  Country: BR (occurrence: BR)
  Receive Date: 20160810
  Receipt Date: 20161205
  Transmission Date: 20170207
  Serious: Yes (Other)
  Sender: FDA-Public Use
  Company Number: BR-PFIZER INC-2016299576

PATIENT
  Age: 68 Year
  Sex: Female

DRUGS (3)
  1. PLASIL /00041902/ [Concomitant]
     Active Substance: METOCLOPRAMIDE HYDROCHLORIDE
     Dosage: UNK
  2. SUTENT [Suspect]
     Active Substance: SUNITINIB MALATE
     Indication: METASTATIC RENAL CELL CARCINOMA
     Dosage: 50 MG, CYCLE 4X1
     Route: 048
     Dates: start: 20160608, end: 201610
  3. INSULIN [Concomitant]
     Active Substance: INSULIN NOS
     Indication: DIABETES MELLITUS
     Dosage: 20 IU, 1X/DAY

REACTIONS (18)
  - Aphonia [Unknown]
  - Deafness unilateral [Not Recovered/Not Resolved]
  - Spinal pain [Not Recovered/Not Resolved]
  - Head discomfort [Unknown]
  - Neoplasm progression [Unknown]
  - Depressed mood [Unknown]
  - Drug ineffective [Unknown]
  - Gastritis [Unknown]
  - Epistaxis [Not Recovered/Not Resolved]
  - Dysstasia [Unknown]
  - Asthenia [Not Recovered/Not Resolved]
  - Hypophagia [Not Recovered/Not Resolved]
  - Feeling abnormal [Unknown]
  - Sleep disorder [Unknown]
  - Vomiting [Recovering/Resolving]
  - Oral discomfort [Not Recovered/Not Resolved]
  - Fear [Unknown]
  - Memory impairment [Not Recovered/Not Resolved]

NARRATIVE: CASE EVENT DATE: 2016
